FAERS Safety Report 6908864-4 (Version None)
Quarter: 2010Q3

REPORT INFORMATION
  Report Type: 
  Country: None (occurrence: None)
  Receive Date: 20100719
  Receipt Date: 20091103
  Transmission Date: 20110219
  Serious: Yes (Other)
  Sender: FDA-Public Use
  Company Number: US-WYE-H11996809

PATIENT
  Age: 82 Year
  Sex: Female
  Weight: 72.64 kg

DRUGS (2)
  1. ADVIL LIQUI-GELS [Suspect]
     Indication: GINGIVAL PAIN
     Dosage: 2 TABLETS AS NEEDED, ORAL
     Route: 048
     Dates: start: 20090801, end: 20090101
  2. BENICAR [Concomitant]

REACTIONS (2)
  - CONDITION AGGRAVATED [None]
  - HYPERTENSION [None]
